FAERS Safety Report 16110515 (Version 1)
Quarter: 2019Q1

REPORT INFORMATION
  Report Type: Spontaneous
  Country: US (occurrence: US)
  Receive Date: 20190325
  Receipt Date: 20190325
  Transmission Date: 20190418
  Serious: No
  Sender: FDA-Public Use
  Company Number: US-AUROBINDO-AUR-APU-2018-033135

PATIENT
  Sex: Male
  Weight: 79.37 kg

DRUGS (2)
  1. GABAPENTIN CAPSULES 100 MG [Suspect]
     Active Substance: GABAPENTIN
     Indication: NEUROPATHY PERIPHERAL
     Dosage: UNK, TWO TIMES A DAY
     Route: 065
     Dates: start: 20180603, end: 20180620
  2. GABAPENTIN CAPSULES 100 MG [Suspect]
     Active Substance: GABAPENTIN
     Dosage: 400 MILLIGRAM
     Route: 065

REACTIONS (8)
  - Vision blurred [Not Recovered/Not Resolved]
  - Night sweats [Not Recovered/Not Resolved]
  - Drug hypersensitivity [Not Recovered/Not Resolved]
  - Pulse pressure increased [Not Recovered/Not Resolved]
  - Oral pain [Not Recovered/Not Resolved]
  - Headache [Not Recovered/Not Resolved]
  - Arthralgia [Not Recovered/Not Resolved]
  - Eye pain [Not Recovered/Not Resolved]
